FAERS Safety Report 16338509 (Version 3)
Quarter: 2019Q2

REPORT INFORMATION
  Report Type: Spontaneous
  Country: FR (occurrence: FR)
  Receive Date: 20190521
  Receipt Date: 20190603
  Transmission Date: 20190711
  Serious: Yes (Other)
  Sender: FDA-Public Use
  Company Number: FR-STRIDES ARCOLAB LIMITED-2019SP004305

PATIENT
  Sex: Female

DRUGS (2)
  1. SUFENTANIL [Concomitant]
     Active Substance: SUFENTANIL
     Indication: ANAESTHESIA
     Dosage: 1.5 ?G/KG OF ESTIMATED FOETAL WEIGHT
     Route: 008
  2. POTASSIUM CHLORIDE. [Suspect]
     Active Substance: POTASSIUM CHLORIDE
     Indication: ABORTION INDUCED
     Dosage: 10% POTASSIUM CHLORIDE (10ML) THROUGH INTRAFUNICULAR ROUTE

REACTIONS (1)
  - Paralysis [Recovered/Resolved]
